FAERS Safety Report 21781272 (Version 1)
Quarter: 2022Q4

REPORT INFORMATION
  Report Type: Spontaneous
  Country: QA (occurrence: QA)
  Receive Date: 20221227
  Receipt Date: 20221227
  Transmission Date: 20230112
  Serious: Yes (Life-Threatening, Hospitalization, Other)
  Sender: FDA-Public Use
  Company Number: None

PATIENT
  Age: 35 Year
  Sex: Female

DRUGS (1)
  1. IBUPROFEN [Suspect]
     Active Substance: IBUPROFEN
     Indication: Pain
     Dosage: UNK
     Route: 065

REACTIONS (4)
  - Pseudomonas infection [Recovered/Resolved]
  - Necrotising fasciitis [Recovered/Resolved]
  - Streptococcal infection [Recovered/Resolved]
  - Septic shock [Recovered/Resolved]
